FAERS Safety Report 7783228-2 (Version None)
Quarter: 2011Q3

REPORT INFORMATION
  Report Type: 
  Country: None (occurrence: None)
  Receive Date: 20110928
  Receipt Date: 20110920
  Transmission Date: 20111222
  Serious: Yes (Other)
  Sender: FDA-Public Use
  Company Number: US-JNJFOC-20110910389

PATIENT
  Sex: Female

DRUGS (2)
  1. NUCYNTA [Suspect]
     Indication: PAIN
     Route: 048
  2. SIMPONI [Concomitant]
     Indication: PSORIASIS
     Dosage: MONTHLY ONCE
     Route: 058

REACTIONS (2)
  - CARPAL TUNNEL SYNDROME [None]
  - DRUG INEFFECTIVE [None]
